FAERS Safety Report 11391507 (Version 1)
Quarter: 2015Q3

REPORT INFORMATION
  Report Type: Spontaneous
  Country: US (occurrence: None)
  Receive Date: 20150814
  Receipt Date: 20150814
  Transmission Date: 20151125
  Serious: Yes (Disabling)
  Sender: FDA-Public Use
  Company Number: None

PATIENT
  Age: 41 Year
  Sex: Female
  Weight: 61.24 kg

DRUGS (5)
  1. CELEBREX [Concomitant]
     Active Substance: CELECOXIB
  2. LAMICTAL [Concomitant]
     Active Substance: LAMOTRIGINE
  3. CYCLOBENZAPRINE [Concomitant]
     Active Substance: CYCLOBENZAPRINE
  4. LYRICA [Concomitant]
     Active Substance: PREGABALIN
  5. LITHIUM CARBONATE LITHIUM 300 MG [Suspect]
     Active Substance: LITHIUM CARBONATE
     Indication: MOOD ALTERED
     Route: 048
     Dates: start: 20150421, end: 20150430

REACTIONS (1)
  - Urinary incontinence [None]

NARRATIVE: CASE EVENT DATE: 20150430
